FAERS Safety Report 8265905-2 (Version None)
Quarter: 2012Q2

REPORT INFORMATION
  Report Type: 
  Country: None (occurrence: None)
  Receive Date: 20120403
  Receipt Date: 20120319
  Transmission Date: 20120825
  Serious: Yes (Congenital Anomaly, Other)
  Sender: FDA-Public Use
  Company Number: E2B_00000188

PATIENT
  Sex: Male
  Weight: 3.6 kg

DRUGS (3)
  1. FOLIC ACID (FOLSAURE) [Concomitant]
  2. LAMOTRIGINE [Suspect]
     Indication: EPILEPSY
     Dosage: 700 MG/D (225-225-250) FOR TWO YEARS, TRANSPLACENTAL
     Route: 064
     Dates: start: 20091111, end: 20100811
  3. VIMPAT [Suspect]
     Indication: EPILEPSY
     Dosage: 200 MG/D (100-0-100) FOR ONE YEAR (UNKNOWN), TRANSPLACENTAL
     Route: 064
     Dates: start: 20091111, end: 20100811

REACTIONS (4)
  - MATERNAL DRUGS AFFECTING FOETUS [None]
  - HYPERBILIRUBINAEMIA [None]
  - BRADYCARDIA NEONATAL [None]
  - ATRIAL SEPTAL DEFECT [None]
